FAERS Safety Report 10086042 (Version 1)
Quarter: 2014Q2

REPORT INFORMATION
  Report Type: Spontaneous
  Country: BR (occurrence: BR)
  Receive Date: 20140418
  Receipt Date: 20140418
  Transmission Date: 20141212
  Serious: Yes (Hospitalization)
  Sender: FDA-Public Use
  Company Number: BR-JNJFOC-20140409594

PATIENT
  Age: 12 Year
  Sex: Female

DRUGS (2)
  1. REMICADE [Suspect]
     Indication: CROHN^S DISEASE
     Route: 042
     Dates: start: 201401
  2. REMICADE [Suspect]
     Indication: CROHN^S DISEASE
     Dosage: 6TH WEEK
     Route: 042
     Dates: start: 20140304

REACTIONS (3)
  - Crohn^s disease [Not Recovered/Not Resolved]
  - Dehydration [Not Recovered/Not Resolved]
  - Malnutrition [Not Recovered/Not Resolved]
